FAERS Safety Report 4451723-X (Version None)
Quarter: 2004Q3

REPORT INFORMATION
  Report Type: 
  Country: None (occurrence: None)
  Receive Date: 20040915
  Receipt Date: 20040830
  Transmission Date: 20050211
  Serious: No
  Sender: FDA-Public Use
  Company Number: 04H-167-0272024-00

PATIENT
  Age: 74 Year
  Sex: Female

DRUGS (5)
  1. HEPARIN SODIUM [Suspect]
     Indication: MYOCARDIAL ISCHAEMIA
     Dosage: INTRAVENOUS
     Route: 042
  2. GAVISCON [Concomitant]
  3. ACETYLSALICYLIC ACID [Concomitant]
  4. LISINOPRIL [Concomitant]
  5. NITROGLYCERIN [Concomitant]

REACTIONS (8)
  - BARIUM SWALLOW ABNORMAL [None]
  - CONDITION AGGRAVATED [None]
  - DYSPHAGIA [None]
  - HAEMATEMESIS [None]
  - MELAENA [None]
  - OESOPHAGEAL HAEMORRHAGE [None]
  - PNEUMOTHORAX [None]
  - PROCEDURAL COMPLICATION [None]
